FAERS Safety Report 7215022-5 (Version None)
Quarter: 2011Q1

REPORT INFORMATION
  Report Type: 
  Country: None (occurrence: None)
  Receive Date: 20110107
  Receipt Date: 20100714
  Transmission Date: 20110831
  Serious: No
  Sender: FDA-Public Use
  Company Number: A0870430A

PATIENT
  Age: 70 Year
  Sex: Female

DRUGS (3)
  1. LOVAZA [Suspect]
     Indication: BLOOD CHOLESTEROL INCREASED
     Dosage: 2CAP TWICE PER DAY
     Route: 048
     Dates: start: 20100401
  2. PEPTO BISMOL [Concomitant]
  3. PROBIOTICS [Concomitant]

REACTIONS (3)
  - FAECAL INCONTINENCE [None]
  - MUSCLE SPASMS [None]
  - DIARRHOEA [None]
